FAERS Safety Report 4965911-7 (Version None)
Quarter: 2006Q2

REPORT INFORMATION
  Report Type: 
  Country: None (occurrence: None)
  Receive Date: 20060407
  Receipt Date: 20060220
  Transmission Date: 20061013
  Serious: Yes (Other)
  Sender: FDA-Public Use
  Company Number: 2006UW02787

PATIENT
  Age: 61 Year
  Sex: Female

DRUGS (1)
  1. FASLODEX [Suspect]
     Route: 030

REACTIONS (1)
  - HEPATITIS A [None]
